FAERS Safety Report 9462333 (Version 1)
Quarter: 2013Q3

REPORT INFORMATION
  Report Type: Spontaneous
  Country: AU (occurrence: AU)
  Receive Date: 20130816
  Receipt Date: 20130816
  Transmission Date: 20140515
  Serious: Yes (Hospitalization)
  Sender: FDA-Public Use
  Company Number: AU-PFIZER INC-2013234695

PATIENT
  Age: 71 Year
  Sex: Female

DRUGS (1)
  1. NORVASC [Suspect]
     Dosage: UNK
     Dates: start: 20130808

REACTIONS (5)
  - Hypertension [Unknown]
  - Feeling abnormal [Unknown]
  - Malaise [Unknown]
  - Dizziness [Unknown]
  - Drug ineffective [Unknown]
